FAERS Safety Report 7283273 (Version 6)
Quarter: 2013Q4

REPORT INFORMATION
  Report Type: Spontaneous
  Country: US (occurrence: US)
  Receive Date: 20100218
  Receipt Date: 20131018
  Transmission Date: 20140711
  Serious: Yes (Hospitalization)
  Sender: FDA-Public Use
  Company Number: US-BIOGENIDEC-2010BI004785

PATIENT
  Age: 65 Year
  Sex: Female

DRUGS (2)
  1. AVONEX [Suspect]
     Indication: MULTIPLE SCLEROSIS
     Route: 030
     Dates: start: 20060627
  2. AVONEX [Suspect]
     Indication: MULTIPLE SCLEROSIS
     Route: 030
     Dates: start: 20060801

REACTIONS (9)
  - Fall [Recovered/Resolved]
  - Joint dislocation [Recovered/Resolved]
  - Arterial injury [Recovered/Resolved]
  - Nerve injury [Recovered/Resolved]
  - Compartment syndrome [Recovered/Resolved]
  - Skin graft [Recovered/Resolved]
  - Bone disorder [Not Recovered/Not Resolved]
  - Infected bites [Recovered/Resolved]
  - Multiple sclerosis relapse [Recovered/Resolved]
